FAERS Safety Report 6928782-5 (Version None)
Quarter: 2010Q3

REPORT INFORMATION
  Report Type: 
  Country: None (occurrence: None)
  Receive Date: 20100806
  Receipt Date: 20091116
  Transmission Date: 20110219
  Serious: No
  Sender: FDA-Public Use
  Company Number: 2009-00746

PATIENT
  Age: 76 Year
  Sex: Male
  Weight: 90.7194 kg

DRUGS (6)
  1. ZICAM COLD REMEDY NASAL GEL [Suspect]
     Dosage: SPORADIC, SEVERAL YEARS; SEVERAL YEARS AGO-RECENT
  2. TRAVATAN OPTH DROPS [Concomitant]
  3. AZARGA OPTH DROPS [Concomitant]
  4. ZOLOFT [Concomitant]
  5. TRAZODONE HCL [Concomitant]
  6. MULTI-VITAMIN [Concomitant]

REACTIONS (1)
  - ANOSMIA [None]
